FAERS Safety Report 5771514-7 (Version None)
Quarter: 2008Q2

REPORT INFORMATION
  Report Type: 
  Country: None (occurrence: None)
  Receive Date: 20080612
  Receipt Date: 20080612
  Transmission Date: 20081010
  Serious: Yes (Other)
  Sender: FDA-Public Use
  Company Number: None

PATIENT
  Age: 3 Year
  Sex: Female
  Weight: 18.1439 kg

DRUGS (1)
  1. SINGULAIR [Suspect]
     Indication: SEASONAL ALLERGY
     Dosage: 1 PILL DAILY
     Dates: start: 20080522, end: 20080606

REACTIONS (9)
  - ABDOMINAL PAIN UPPER [None]
  - ANGER [None]
  - ANOREXIA [None]
  - ANXIETY [None]
  - HALLUCINATION [None]
  - MOOD SWINGS [None]
  - NIGHTMARE [None]
  - PARAESTHESIA [None]
  - RASH [None]
